FAERS Safety Report 22520649 (Version 1)
Quarter: 2023Q2

REPORT INFORMATION
  Report Type: Spontaneous
  Country: US (occurrence: US)
  Receive Date: 20230605
  Receipt Date: 20230605
  Transmission Date: 20230721
  Serious: Yes (Other)
  Sender: FDA-Public Use
  Company Number: US-AMGEN-USASP2023092924

PATIENT
  Age: 19 Year
  Sex: Female

DRUGS (2)
  1. RITUXIMAB [Suspect]
     Active Substance: RITUXIMAB
     Indication: Kidney transplant rejection
     Dosage: UNK
     Route: 065
  2. RITUXIMAB [Suspect]
     Active Substance: RITUXIMAB
     Indication: Transplant rejection

REACTIONS (6)
  - Complications of transplanted kidney [Unknown]
  - Kidney transplant rejection [Unknown]
  - Treatment noncompliance [Unknown]
  - Drug effective for unapproved indication [Unknown]
  - Bacterial infection [Unknown]
  - Off label use [Unknown]
